FAERS Safety Report 5814299-8 (Version None)
Quarter: 2008Q3

REPORT INFORMATION
  Report Type: 
  Country: None (occurrence: None)
  Receive Date: 20080717
  Receipt Date: 20080710
  Transmission Date: 20090109
  Serious: Yes (Other)
  Sender: FDA-Public Use
  Company Number: US-ELI_LILLY_AND_COMPANY-US200807002075

PATIENT
  Sex: Female

DRUGS (3)
  1. HUMULIN N [Suspect]
  2. HUMULIN N [Suspect]
  3. HUMULIN N [Suspect]
     Dates: start: 19910101

REACTIONS (15)
  - ANXIETY [None]
  - BLOOD GLUCOSE DECREASED [None]
  - BLOOD GLUCOSE INCREASED [None]
  - CONVULSION [None]
  - DECREASED APPETITE [None]
  - DEPRESSION [None]
  - FATIGUE [None]
  - FLIGHT OF IDEAS [None]
  - HALLUCINATION, VISUAL [None]
  - INCREASED APPETITE [None]
  - MEMORY IMPAIRMENT [None]
  - OEDEMA PERIPHERAL [None]
  - PAIN IN EXTREMITY [None]
  - PHOTOPHOBIA [None]
  - STRESS [None]
